FAERS Safety Report 10263061 (Version 2)
Quarter: 2014Q2

REPORT INFORMATION
  Report Type: Report from Study
  Country: US (occurrence: US)
  Receive Date: 20140626
  Receipt Date: 20140626
  Transmission Date: 20141212
  Serious: Yes (Death)
  Sender: FDA-Public Use
  Company Number: US-MYLANLABS-2013S1028992

PATIENT
  Age: 68 Year
  Sex: Male

DRUGS (10)
  1. CLOZAPINE TABLETS [Suspect]
     Indication: SCHIZOPHRENIA
     Route: 048
     Dates: end: 201312
  2. CLOZAPINE TABLETS [Suspect]
     Indication: PSYCHOTIC DISORDER
     Route: 048
     Dates: end: 201312
  3. LAMOTRIGINE [Concomitant]
     Dosage: 100MG QAM, 200MG QHS
  4. LORAZEPAM [Concomitant]
     Route: 048
  5. SPIRIVA [Concomitant]
  6. ADVAIR [Concomitant]
  7. PRO-AIR [Concomitant]
     Route: 055
  8. POLYCARBOPHIL [Concomitant]
  9. RANITIDINE [Concomitant]
     Route: 048
  10. SENNA [Concomitant]
     Route: 048

REACTIONS (1)
  - Respiratory failure [Fatal]
